FAERS Safety Report 23888927 (Version 1)
Quarter: 2024Q2

REPORT INFORMATION
  Report Type: Spontaneous
  Country: PL (occurrence: PL)
  Receive Date: 20240523
  Receipt Date: 20240523
  Transmission Date: 20240716
  Serious: Yes (Other)
  Sender: FDA-Public Use
  Company Number: PL-AMGEN-POLSP2024091740

PATIENT
  Age: 50 Year
  Sex: Female

DRUGS (4)
  1. OXALIPLATIN [Suspect]
     Active Substance: OXALIPLATIN
     Indication: Colorectal cancer
     Dosage: UNK UNK, Q2WK
     Route: 065
     Dates: start: 20230313
  2. VECTIBIX [Suspect]
     Active Substance: PANITUMUMAB
     Indication: Colorectal cancer
     Dosage: UNK UNK, Q2WK (14 DAY RHYTHM)
     Route: 065
     Dates: start: 20230313
  3. FLUOROURACIL [Suspect]
     Active Substance: FLUOROURACIL
     Indication: Colorectal cancer
     Dosage: UNK UNK, Q2WK
     Route: 065
     Dates: start: 20230313
  4. LEUCOVORIN [Suspect]
     Active Substance: LEUCOVORIN\LEUCOVORIN CALCIUM
     Indication: Colorectal cancer
     Dosage: UNK UNK, Q2WK
     Route: 065
     Dates: start: 20230313

REACTIONS (3)
  - Metastases to liver [Unknown]
  - Rash [Unknown]
  - Skin lesion [Unknown]

NARRATIVE: CASE EVENT DATE: 20230101
